FAERS Safety Report 7149393-5 (Version None)
Quarter: 2010Q4

REPORT INFORMATION
  Report Type: 
  Country: None (occurrence: None)
  Receive Date: 20101209
  Receipt Date: 20101129
  Transmission Date: 20110411
  Serious: Yes (Other)
  Sender: FDA-Public Use
  Company Number: US-ABBOTT-10P-163-0688449-00

PATIENT
  Sex: Male

DRUGS (10)
  1. HUMIRA [Suspect]
     Indication: JUVENILE ARTHRITIS
     Route: 058
     Dates: start: 20100611
  2. METHOTREXATE [Concomitant]
     Indication: JUVENILE ARTHRITIS
     Dates: start: 20100114, end: 20100604
  3. ALBUTEROL [Concomitant]
     Indication: ASTHMA
     Dates: start: 20000101
  4. FLONASE [Concomitant]
     Indication: HYPERSENSITIVITY
     Route: 045
     Dates: start: 20070101
  5. CLARITIN [Concomitant]
     Indication: HYPERSENSITIVITY
     Dates: start: 20010101
  6. KEPPRA [Concomitant]
     Indication: CONVULSION
     Dosage: AM DOSE
     Dates: start: 20081101, end: 20101116
  7. KEPPRA [Concomitant]
     Dosage: PM DOSE
     Dates: start: 20081101, end: 20101116
  8. ZOFRAN [Concomitant]
     Indication: NAUSEA
     Dates: start: 20100114
  9. FOLIC ACID [Concomitant]
     Indication: VITAMIN SUPPLEMENTATION
     Dates: start: 20100113
  10. NAPROSYN [Concomitant]
     Indication: JUVENILE ARTHRITIS
     Dates: start: 20091202

REACTIONS (1)
  - CONVULSION [None]
